FAERS Safety Report 17136417 (Version 2)
Quarter: 2019Q4

REPORT INFORMATION
  Report Type: Spontaneous
  Country: CN (occurrence: CN)
  Receive Date: 20191210
  Receipt Date: 20191217
  Transmission Date: 20200122
  Serious: Yes (Death, Other)
  Sender: FDA-Public Use
  Company Number: CN-ASTRAZENECA-2019SF76784

PATIENT
  Age: 55 Year
  Sex: Female
  Weight: 60 kg

DRUGS (2)
  1. IRESSA [Suspect]
     Active Substance: GEFITINIB
     Indication: NON-SMALL CELL LUNG CANCER
     Dosage: ONE TABLET EVERY MORNING
     Route: 048
     Dates: start: 20181201, end: 201909
  2. TAGRISSO [Suspect]
     Active Substance: OSIMERTINIB
     Route: 048
     Dates: start: 201909, end: 20191001

REACTIONS (13)
  - Pyrexia [Unknown]
  - Drug ineffective [Unknown]
  - Completed suicide [Fatal]
  - Drug resistance [Unknown]
  - Malignant neoplasm progression [Fatal]
  - Head discomfort [Unknown]
  - Asthenia [Unknown]
  - General physical health deterioration [Unknown]
  - Feeding disorder [Unknown]
  - Dyspepsia [Unknown]
  - Body temperature decreased [Unknown]
  - Gait disturbance [Unknown]
  - Psychiatric symptom [Unknown]

NARRATIVE: CASE EVENT DATE: 201909
